FAERS Safety Report 9881790 (Version 4)
Quarter: 2015Q3

REPORT INFORMATION
  Report Type: Report from Study
  Country: US (occurrence: US)
  Receive Date: 20140207
  Receipt Date: 20150715
  Transmission Date: 20151125
  Serious: Yes (Death, Hospitalization, Other)
  Sender: FDA-Public Use
  Company Number: US-SA-2014SA014819

PATIENT
  Age: 57 Year
  Sex: Male
  Weight: 46.27 kg

DRUGS (3)
  1. FABRAZYME [Suspect]
     Active Substance: AGALSIDASE BETA
     Indication: FABRY^S DISEASE
     Route: 041
  2. FABRAZYME [Suspect]
     Active Substance: AGALSIDASE BETA
     Indication: FABRY^S DISEASE
     Route: 041
     Dates: start: 20120625
  3. IRON [Concomitant]
     Active Substance: IRON
     Route: 041

REACTIONS (13)
  - Diarrhoea [Not Recovered/Not Resolved]
  - Septic shock [Not Recovered/Not Resolved]
  - Malnutrition [Not Recovered/Not Resolved]
  - Cerebrovascular accident [Unknown]
  - Abasia [Recovered/Resolved]
  - Gastrointestinal disorder [Not Recovered/Not Resolved]
  - Malaise [Unknown]
  - Pruritus generalised [Not Recovered/Not Resolved]
  - Death [Fatal]
  - Decubitus ulcer [Not Recovered/Not Resolved]
  - Infusion related reaction [Unknown]
  - Hemiparesis [Unknown]
  - Renal impairment [Not Recovered/Not Resolved]

NARRATIVE: CASE EVENT DATE: 201311
